FAERS Safety Report 10079360 (Version 1)
Quarter: 2014Q2

REPORT INFORMATION
  Report Type: Spontaneous
  Country: US (occurrence: None)
  Receive Date: 20140414
  Receipt Date: 20140414
  Transmission Date: 20141212
  Serious: No
  Sender: FDA-Public Use
  Company Number: None

PATIENT
  Age: 76 Year
  Sex: Female
  Weight: 113.4 kg

DRUGS (16)
  1. LYRICA [Suspect]
     Indication: FIBROMYALGIA
     Dosage: 75 MG, TWICE DAILY, BY MOUTH
     Route: 048
     Dates: start: 20140115, end: 20140222
  2. SIMVASTATIN [Concomitant]
  3. POTASSIUM 20 MEQ [Concomitant]
  4. OXYBUTYMIN [Concomitant]
  5. GABAPENTIN 300 MG [Concomitant]
  6. AMITRIPTYLINE [Concomitant]
  7. CHLORTHALIDONE [Concomitant]
  8. MULTI VIT [Concomitant]
  9. CO QID 100 MG [Concomitant]
  10. LYSINE 500 MG? [Concomitant]
  11. CINNAMON [Concomitant]
  12. MEGA RED KRILL OIL [Concomitant]
  13. LIPO-FLAVONOID [Concomitant]
  14. ASPRIRIN 81 MG [Concomitant]
  15. JUICE PLUS [Concomitant]
  16. PANTOPRAZOLE [Concomitant]

REACTIONS (3)
  - Dysarthria [None]
  - Dyspepsia [None]
  - Balance disorder [None]
